FAERS Safety Report 4982084-5 (Version None)
Quarter: 2006Q2

REPORT INFORMATION
  Report Type: 
  Country: None (occurrence: None)
  Receive Date: 20060425
  Receipt Date: 20030605
  Transmission Date: 20061013
  Serious: Yes (Death, Hospitalization, Disabling)
  Sender: FDA-Public Use
  Company Number: US-MERCK-0306USA00810

PATIENT
  Age: 54 Year
  Sex: Male
  Weight: 120 kg

DRUGS (6)
  1. VIOXX [Suspect]
     Indication: BACK PAIN
     Route: 048
     Dates: start: 20010517, end: 20010731
  2. VIOXX [Suspect]
     Route: 048
     Dates: start: 20010101
  3. ZESTRIL [Concomitant]
     Route: 048
     Dates: start: 20010101
  4. VICODIN [Concomitant]
     Route: 065
  5. TIAZAC [Concomitant]
     Route: 065
  6. ASPIRIN [Concomitant]
     Route: 065

REACTIONS (12)
  - ADVERSE EVENT [None]
  - CONSTIPATION [None]
  - DEATH [None]
  - HAEMATURIA [None]
  - HUMERUS FRACTURE [None]
  - HYPERTENSION [None]
  - MULTIPLE MYELOMA [None]
  - NORMOCHROMIC NORMOCYTIC ANAEMIA [None]
  - OEDEMA PERIPHERAL [None]
  - RENAL DISORDER [None]
  - SPINAL CORD INJURY CAUDA EQUINA [None]
  - URINARY TRACT INFECTION [None]
